FAERS Safety Report 4336441-0 (Version None)
Quarter: 2004Q2

REPORT INFORMATION
  Report Type: 
  Country: None (occurrence: None)
  Receive Date: 20040407
  Receipt Date: 20040325
  Transmission Date: 20050107
  Serious: Yes (Other)
  Sender: FDA-Public Use
  Company Number: HQWYE190629MAR04

PATIENT
  Age: 36 Year
  Sex: Male
  Weight: 117.13 kg

DRUGS (6)
  1. EFFEXOR XR [Suspect]
     Indication: ANXIETY
     Dosage: 37.5 MG 1X PER 1 DAY ORAL
     Route: 048
     Dates: start: 20030101, end: 20031201
  2. EFFEXOR XR [Suspect]
     Indication: DEPRESSION
     Dosage: 37.5 MG 1X PER 1 DAY ORAL
     Route: 048
     Dates: start: 20030101, end: 20031201
  3. SYNTHROID [Concomitant]
  4. NEXIUM [Concomitant]
  5. KLONOPIN [Concomitant]
  6. BUSPAR [Concomitant]

REACTIONS (9)
  - AGITATION [None]
  - ANXIETY [None]
  - DIZZINESS [None]
  - DRUG WITHDRAWAL SYNDROME [None]
  - FEELING ABNORMAL [None]
  - LETHARGY [None]
  - LOSS OF LIBIDO [None]
  - NAUSEA [None]
  - THROMBOPHLEBITIS [None]
